FAERS Safety Report 13477884 (Version 2)
Quarter: 2017Q2

REPORT INFORMATION
  Report Type: Spontaneous
  Country: AT (occurrence: AT)
  Receive Date: 20170425
  Receipt Date: 20170426
  Transmission Date: 20170830
  Serious: Yes (Death)
  Sender: FDA-Public Use
  Company Number: AT-PFIZER INC-2017170148

PATIENT
  Age: 16 Year
  Sex: Female

DRUGS (15)
  1. LEVETIRACETAM. [Suspect]
     Active Substance: LEVETIRACETAM
     Indication: STATUS EPILEPTICUS
     Dosage: UNK
  2. LORAZEPAM. [Suspect]
     Active Substance: LORAZEPAM
     Indication: STATUS EPILEPTICUS
     Dosage: UNK
  3. MIDAZOLAM [Suspect]
     Active Substance: MIDAZOLAM HYDROCHLORIDE
     Indication: STATUS EPILEPTICUS
     Dosage: UNK
  4. LACOSAMIDE. [Suspect]
     Active Substance: LACOSAMIDE
     Indication: STATUS EPILEPTICUS
     Dosage: UNK
  5. THIAMINE. [Suspect]
     Active Substance: THIAMINE
     Indication: STATUS EPILEPTICUS
     Dosage: UNK
  6. COENZYME Q10 [Suspect]
     Active Substance: UBIDECARENONE
     Indication: STATUS EPILEPTICUS
     Dosage: UNK
  7. IMMUNOGLOBULIN INTRAVENOUS HUMAN [Concomitant]
     Active Substance: HUMAN IMMUNOGLOBULIN G
     Indication: QUADRIPLEGIA
     Dosage: UNK
     Route: 042
  8. PHENYTOIN SODIUM. [Suspect]
     Active Substance: PHENYTOIN SODIUM
     Indication: STATUS EPILEPTICUS
     Dosage: UNK
  9. TOPIRAMATE. [Suspect]
     Active Substance: TOPIRAMATE
     Indication: STATUS EPILEPTICUS
     Dosage: UNK
  10. VALPROATE [Suspect]
     Active Substance: VALPROIC ACID
     Indication: STATUS EPILEPTICUS
     Dosage: UNK
  11. IMMUNOGLOBULIN INTRAVENOUS HUMAN [Concomitant]
     Active Substance: HUMAN IMMUNOGLOBULIN G
     Indication: GUILLAIN-BARRE SYNDROME
  12. CORTISONE [Suspect]
     Active Substance: CORTISONE\HYDROCORTISONE
     Indication: STATUS EPILEPTICUS
     Dosage: UNK
  13. PHENOBARBITAL. [Suspect]
     Active Substance: PHENOBARBITAL
     Indication: STATUS EPILEPTICUS
     Dosage: UNK
  14. MAGNESIUM [Suspect]
     Active Substance: MAGNESIUM
     Indication: STATUS EPILEPTICUS
     Dosage: UNK
     Route: 041
  15. RIBOFLAVIN [Suspect]
     Active Substance: RIBOFLAVIN
     Indication: STATUS EPILEPTICUS
     Dosage: UNK

REACTIONS (1)
  - Drug ineffective [Fatal]
